FAERS Safety Report 9681441 (Version 1)
Quarter: 2013Q4

REPORT INFORMATION
  Report Type: Spontaneous
  Country: US (occurrence: US)
  Receive Date: 20131111
  Receipt Date: 20131111
  Transmission Date: 20140711
  Serious: No
  Sender: FDA-Public Use
  Company Number: US-BAYER-2013-137075

PATIENT
  Age: 71 Year
  Sex: Female
  Weight: 71.66 kg

DRUGS (2)
  1. ALEVE TABLET [Suspect]
     Indication: BACK PAIN
     Dosage: 1 DF, QD
     Route: 048
     Dates: start: 20131031
  2. ALEVE TABLET [Suspect]
     Indication: HEADACHE

REACTIONS (1)
  - Drug ineffective [None]
